FAERS Safety Report 18357534 (Version 5)
Quarter: 2020Q4

REPORT INFORMATION
  Report Type: Report from Study
  Country: RU (occurrence: RU)
  Receive Date: 20201007
  Receipt Date: 20201204
  Transmission Date: 20210114
  Serious: Yes (Death, Hospitalization)
  Sender: FDA-Public Use
  Company Number: RU-EISAI MEDICAL RESEARCH-EC-2020-077447

PATIENT
  Age: 80 Year
  Sex: Female
  Weight: 60.45 kg

DRUGS (11)
  1. PLACEBO [Suspect]
     Active Substance: UNSPECIFIED INGREDIENT
     Indication: HEPATOCELLULAR CARCINOMA
     Route: 041
     Dates: start: 20190426, end: 20200401
  2. NUROFEN [Concomitant]
     Active Substance: IBUPROFEN
     Dates: start: 201901
  3. INDAPAMIDE. [Concomitant]
     Active Substance: INDAPAMIDE
     Dates: start: 201001
  4. LENVATINIB [Suspect]
     Active Substance: LENVATINIB
     Route: 048
     Dates: start: 20200511, end: 20200511
  5. PLACEBO [Suspect]
     Active Substance: UNSPECIFIED INGREDIENT
     Route: 041
     Dates: start: 20200422, end: 20200422
  6. LENVATINIB [Suspect]
     Active Substance: LENVATINIB
     Indication: HEPATOCELLULAR CARCINOMA
     Dosage: STARTING DOSE AT 12 MILLIGRAM, (FLUCTUATED DOSE)
     Route: 048
     Dates: start: 20190426, end: 20200510
  7. L-THYROXIN [Concomitant]
     Active Substance: LEVOTHYROXINE SODIUM
     Dates: start: 20190811
  8. OMEPRAZOLE. [Concomitant]
     Active Substance: OMEPRAZOLE
     Dates: start: 20190325
  9. BISOPROLOL [Concomitant]
     Active Substance: BISOPROLOL
     Dates: start: 20190513
  10. ALLOPURINOL. [Concomitant]
     Active Substance: ALLOPURINOL
     Dates: start: 201901
  11. LORISTA [Concomitant]
     Active Substance: LOSARTAN POTASSIUM
     Dates: start: 201001

REACTIONS (1)
  - Hepatic cirrhosis [Fatal]

NARRATIVE: CASE EVENT DATE: 20200512
